FAERS Safety Report 23985882 (Version 1)
Quarter: 2024Q2

REPORT INFORMATION
  Report Type: Spontaneous
  Country: GB (occurrence: GB)
  Receive Date: 20240618
  Receipt Date: 20240618
  Transmission Date: 20240716
  Serious: Yes (Disabling, Other)
  Sender: FDA-Public Use
  Company Number: None

PATIENT
  Sex: Female

DRUGS (3)
  1. PROTOPIC [Suspect]
     Active Substance: TACROLIMUS
     Indication: Product used for unknown indication
  2. EUMOVATE [Suspect]
     Active Substance: CLOBETASONE BUTYRATE
     Indication: Product used for unknown indication
  3. CLOBETASOL [Suspect]
     Active Substance: CLOBETASOL
     Indication: Eczema
     Dates: end: 20220220

REACTIONS (20)
  - Rash [Recovering/Resolving]
  - Topical steroid withdrawal reaction [Recovering/Resolving]
  - Skin oedema [Recovered/Resolved]
  - Fatigue [Recovered/Resolved]
  - Medication error [Unknown]
  - Alopecia universalis [Recovering/Resolving]
  - Hyperhidrosis [Recovered/Resolved]
  - Memory impairment [Recovering/Resolving]
  - Chills [Recovered/Resolved]
  - Skin weeping [Recovered/Resolved]
  - Tremor [Recovered/Resolved]
  - Joint swelling [Recovered/Resolved]
  - Skin erosion [Recovering/Resolving]
  - Temperature regulation disorder [Recovered/Resolved]
  - Skin burning sensation [Recovering/Resolving]
  - Topical steroid withdrawal reaction [Recovering/Resolving]
  - Lymphadenopathy [Recovering/Resolving]
  - Weight decreased [Recovered/Resolved]
  - Dry skin [Recovered/Resolved]
  - Poor quality sleep [Recovered/Resolved]

NARRATIVE: CASE EVENT DATE: 20220301
